FAERS Safety Report 21836557 (Version 1)
Quarter: 2023Q1

REPORT INFORMATION
  Report Type: Spontaneous
  Country: GB (occurrence: GB)
  Receive Date: 20230109
  Receipt Date: 20230109
  Transmission Date: 20230417
  Serious: Yes (Disabling, Other)
  Sender: FDA-Public Use
  Company Number: None

PATIENT
  Age: 22 Day
  Sex: Male

DRUGS (4)
  1. IBUPROFEN [Suspect]
     Active Substance: IBUPROFEN
     Indication: Patent ductus arteriosus
     Dosage: 15.4 MILLIGRAM (STAT), INITIAL 10MG/KG DOSE
     Route: 042
  2. IBUPROFEN [Suspect]
     Active Substance: IBUPROFEN
     Dosage: 10 MILLIGRAM/KILOGRAM (INITIAL DOSE)
     Route: 042
     Dates: end: 2022
  3. CAFFEINE CITRATE [Concomitant]
     Active Substance: CAFFEINE CITRATE
     Indication: Product used for unknown indication
     Dosage: 7.7MG ONCE DAILY
     Route: 042
  4. OMEPRAZOLE [Concomitant]
     Active Substance: OMEPRAZOLE
     Indication: Product used for unknown indication
     Dosage: 3.08MG ONCE DAILY
     Route: 048

REACTIONS (1)
  - Thrombocytopenia neonatal [Recovering/Resolving]

NARRATIVE: CASE EVENT DATE: 20220930
